FAERS Safety Report 7034309-2 (Version None)
Quarter: 2010Q4

REPORT INFORMATION
  Report Type: 
  Country: None (occurrence: None)
  Receive Date: 20101008
  Receipt Date: 20100927
  Transmission Date: 20110411
  Serious: Yes (Hospitalization, Other)
  Sender: FDA-Public Use
  Company Number: GB-ELI_LILLY_AND_COMPANY-GB201009007791

PATIENT
  Age: 44 Year
  Sex: Female

DRUGS (9)
  1. OLANZAPINE [Suspect]
     Dosage: UNK, UNKNOWN
     Route: 065
     Dates: start: 20100501
  2. OLANZAPINE [Suspect]
     Dosage: 20 MG, UNKNOWN
     Route: 065
  3. OLANZAPINE [Suspect]
     Dosage: 40 MG, ONCE AS OVERDOSE
     Route: 065
  4. OLANZAPINE [Suspect]
     Dosage: 25 MG, UNKNOWN
     Route: 065
  5. CLOZARIL [Concomitant]
     Indication: SCHIZOPHRENIA
     Dosage: UNK, UNKNOWN
     Route: 065
     Dates: start: 19940210, end: 20100504
  6. AMISULPRIDE [Concomitant]
     Dosage: UNK, UNKNOWN
     Route: 065
  7. FERROUS FUMARATE [Concomitant]
     Indication: ANAEMIA
     Dosage: UNK, UNKNOWN
     Route: 065
  8. HYDROXOCOBALAMIN [Concomitant]
     Indication: ANAEMIA
     Dosage: UNK, UNKNOWN
     Route: 065
  9. HYOSCINE [Concomitant]
     Dosage: UNK, UNKNOWN
     Route: 065

REACTIONS (15)
  - ABNORMAL BEHAVIOUR [None]
  - AGITATION [None]
  - ALCOHOL ABUSE [None]
  - BLOOD PROLACTIN INCREASED [None]
  - CONDITION AGGRAVATED [None]
  - DIARRHOEA [None]
  - DRY MOUTH [None]
  - EATING DISORDER [None]
  - HALLUCINATION, AUDITORY [None]
  - HEAD BANGING [None]
  - MENTAL IMPAIRMENT [None]
  - OVERDOSE [None]
  - SLEEP DISORDER [None]
  - TOBACCO USER [None]
  - TREATMENT NONCOMPLIANCE [None]
